FAERS Safety Report 7702775-2 (Version None)
Quarter: 2011Q3

REPORT INFORMATION
  Report Type: 
  Country: None (occurrence: None)
  Receive Date: 20110823
  Receipt Date: 20110727
  Transmission Date: 20111222
  Serious: No
  Sender: FDA-Public Use
  Company Number: US-BAYER-2011-066266

PATIENT
  Sex: Female

DRUGS (1)
  1. MENOSTAR [Suspect]
     Dosage: UNK, OW

REACTIONS (3)
  - INSOMNIA [None]
  - FATIGUE [None]
  - NIGHT SWEATS [None]
